FAERS Safety Report 8172900-0 (Version None)
Quarter: 2012Q1

REPORT INFORMATION
  Report Type: 
  Country: None (occurrence: None)
  Receive Date: 20120229
  Receipt Date: 20120216
  Transmission Date: 20120608
  Serious: Yes (Hospitalization, Other)
  Sender: FDA-Public Use
  Company Number: CA-JNJFOC-20120200431

PATIENT
  Age: 34 Year
  Sex: Female
  Weight: 80.29 kg

DRUGS (3)
  1. REMICADE [Suspect]
     Indication: CROHN'S DISEASE
     Route: 042
     Dates: start: 20100614
  2. CITALOPRAM [Concomitant]
     Indication: ANXIETY
     Route: 048
     Dates: start: 20100101
  3. REMICADE [Suspect]
     Route: 042
     Dates: start: 20111124

REACTIONS (1)
  - ABDOMINAL HERNIA [None]
